FAERS Safety Report 23938780 (Version 2)
Quarter: 2024Q2

REPORT INFORMATION
  Report Type: Report from Study
  Country: EG (occurrence: EG)
  Receive Date: 20240604
  Receipt Date: 20240611
  Transmission Date: 20240715
  Serious: Yes (Death)
  Sender: FDA-Public Use
  Company Number: EG-Eisai-EC-2024-167258

PATIENT
  Age: 64 Year
  Sex: Female

DRUGS (10)
  1. LENVIMA [Suspect]
     Active Substance: LENVATINIB
     Indication: Colorectal cancer
     Dosage: DOSE UNKNOWN
     Route: 048
     Dates: start: 20240324
  2. KEYTRUDA [Suspect]
     Active Substance: PEMBROLIZUMAB
     Indication: Colorectal cancer
     Route: 042
     Dates: start: 20240323, end: 20240504
  3. FENTANYL [Suspect]
     Active Substance: FENTANYL\FENTANYL CITRATE
     Indication: Tumour pain
     Dosage: DOSE UNKNOWN
     Route: 023
  4. BISOPROLOL FUMARATE [Concomitant]
     Active Substance: BISOPROLOL FUMARATE
     Indication: Hypertension
  5. GLIPTUS [Concomitant]
     Indication: Diabetes mellitus
  6. AMARYL [Concomitant]
     Active Substance: GLIMEPIRIDE
     Indication: Diabetes mellitus
  7. PANADOL [Concomitant]
     Active Substance: ACETAMINOPHEN
     Indication: Analgesic therapy
  8. TRAMADOL [Concomitant]
     Active Substance: TRAMADOL\TRAMADOL HYDROCHLORIDE
     Indication: Analgesic therapy
  9. SPASMOCIN [Concomitant]
     Indication: Analgesic therapy
  10. KETOFAN [Concomitant]
     Indication: Analgesic therapy

REACTIONS (9)
  - Dizziness [Fatal]
  - Dysuria [Fatal]
  - Altered state of consciousness [Fatal]
  - Syncope [Fatal]
  - Malignant neoplasm progression [Fatal]
  - Angina pectoris [Fatal]
  - Somnolence [Not Recovered/Not Resolved]
  - Balance disorder [Not Recovered/Not Resolved]
  - Tumour pain [Not Recovered/Not Resolved]

NARRATIVE: CASE EVENT DATE: 20240101
